FAERS Safety Report 14648312 (Version 7)
Quarter: 2020Q2

REPORT INFORMATION
  Report Type: Report from Study
  Country: US (occurrence: US)
  Receive Date: 20180316
  Receipt Date: 20200612
  Transmission Date: 20200713
  Serious: Yes (Hospitalization, Congenital Anomaly, Other)
  Sender: FDA-Public Use
  Company Number: US-UCBSA-2018009859

PATIENT
  Age: 0 Year
  Sex: Male
  Weight: 1.9 kg

DRUGS (17)
  1. ENDOMETRIN [Concomitant]
     Active Substance: PROGESTERONE
     Indication: INFERTILITY
     Dosage: 100 MG, 3X/DAY (TID)
     Route: 064
     Dates: start: 20170808, end: 20170914
  2. INFLUENZA VACCINE [Concomitant]
     Active Substance: INFLUENZA VIRUS VACCINE
     Indication: PRODUCT USED FOR UNKNOWN INDICATION
     Dosage: UNK
     Route: 064
     Dates: start: 20171102, end: 20171102
  3. METHYLPREDNISOLONE. [Concomitant]
     Active Substance: METHYLPREDNISOLONE
     Indication: PRODUCT USED FOR UNKNOWN INDICATION
     Dosage: UNK
     Route: 064
     Dates: start: 20170804, end: 20170808
  4. FISH OIL [Concomitant]
     Active Substance: FISH OIL
     Indication: PRODUCT USED FOR UNKNOWN INDICATION
     Dosage: UNK
     Route: 064
     Dates: start: 20180130, end: 20180223
  5. LOVENOX [Concomitant]
     Active Substance: ENOXAPARIN SODIUM
     Indication: PRODUCT USED FOR UNKNOWN INDICATION
     Dosage: UNK
     Route: 064
     Dates: start: 20170803, end: 20171005
  6. PLAQUENIL [Concomitant]
     Active Substance: HYDROXYCHLOROQUINE SULFATE
     Indication: RHEUMATOID ARTHRITIS
     Dosage: UNK
     Route: 064
     Dates: start: 20170804, end: 20170818
  7. PROGESTERONE. [Concomitant]
     Active Substance: PROGESTERONE
     Indication: PRODUCT USED FOR UNKNOWN INDICATION
     Dosage: UNK
     Route: 064
     Dates: start: 20170804, end: 20171130
  8. VITAMIN D3 [Concomitant]
     Active Substance: CHOLECALCIFEROL
     Indication: PRODUCT USED FOR UNKNOWN INDICATION
     Dosage: UNK
     Route: 064
     Dates: start: 20170803, end: 20180223
  9. BABY ASPIRIN [Concomitant]
     Active Substance: ASPIRIN
     Indication: PRODUCT USED FOR UNKNOWN INDICATION
     Dosage: 81 MG, ONCE DAILY (QD)
     Route: 064
     Dates: start: 20170720, end: 20171130
  10. TYLENOL [Concomitant]
     Active Substance: ACETAMINOPHEN
     Indication: HEADACHE
     Dosage: UNK
     Route: 064
     Dates: start: 20171201, end: 20180223
  11. DIAZEPAM. [Concomitant]
     Active Substance: DIAZEPAM
     Indication: INFERTILITY
     Dosage: 10 MG, 2X/DAY (BID)
     Route: 064
     Dates: start: 20170808, end: 20170808
  12. FOLIC ACID. [Concomitant]
     Active Substance: FOLIC ACID
     Indication: PRODUCT USED FOR UNKNOWN INDICATION
     Dosage: UNK
     Route: 064
     Dates: start: 20170803, end: 20180223
  13. CALCIUM [Concomitant]
     Active Substance: CALCIUM
     Indication: PRODUCT USED FOR UNKNOWN INDICATION
     Dosage: 600 MG, ONCE DAILY (QD)
     Route: 064
     Dates: start: 20170720, end: 20180223
  14. DOXYCYCLINE. [Concomitant]
     Active Substance: DOXYCYCLINE
     Indication: INFERTILITY
     Dosage: 1 DF, ONCE DAILY (QD)
     Route: 064
     Dates: start: 20170804, end: 20170808
  15. CERTOLIZUMAB PEGOL [Suspect]
     Active Substance: CERTOLIZUMAB PEGOL
     Indication: RHEUMATOID ARTHRITIS
     Dosage: 200 MILLIGRAM, 2X/MONTH
     Route: 064
     Dates: start: 20170803, end: 20170824
  16. PRENATAL VITAMINS [Concomitant]
     Active Substance: VITAMINS
     Indication: PRODUCT USED FOR UNKNOWN INDICATION
     Dosage: UNK
     Route: 064
     Dates: start: 20170915, end: 20180223
  17. DTAP [Concomitant]
     Active Substance: DIPHTHERIA AND TETANUS TOXOIDS AND ACELLULAR PERTUSSIS VACCINE ADSORBED
     Indication: PRODUCT USED FOR UNKNOWN INDICATION
     Dosage: UNK
     Route: 064
     Dates: start: 20180222, end: 20180222

REACTIONS (8)
  - Maternal exposure before pregnancy [Unknown]
  - Atrial septal defect [Recovered/Resolved]
  - VACTERL syndrome [Unknown]
  - Chordee [Unknown]
  - Penile torsion [Unknown]
  - Low birth weight baby [Unknown]
  - Premature baby [Unknown]
  - Developmental delay [Unknown]

NARRATIVE: CASE EVENT DATE: 20170803
